FAERS Safety Report 6195265-2 (Version None)
Quarter: 2009Q2

REPORT INFORMATION
  Report Type: 
  Country: None (occurrence: None)
  Receive Date: 20090519
  Receipt Date: 20090511
  Transmission Date: 20091009
  Serious: Yes (Hospitalization, Other)
  Sender: FDA-Public Use
  Company Number: US-AVENTIS-200914158US

PATIENT
  Age: 84 Year
  Sex: Female

DRUGS (1)
  1. LANTUS [Suspect]
     Route: 058
     Dates: start: 20080101

REACTIONS (4)
  - DEVICE RELATED INFECTION [None]
  - HOSPITALISATION [None]
  - INJECTION SITE PAIN [None]
  - PNEUMONIA ASPIRATION [None]
